FAERS Safety Report 15167556 (Version 3)
Quarter: 2018Q3

REPORT INFORMATION
  Report Type: Report from Study
  Country: DE (occurrence: DE)
  Receive Date: 20180719
  Receipt Date: 20180806
  Transmission Date: 20181010
  Serious: Yes (Hospitalization)
  Sender: FDA-Public Use
  Company Number: DE-TAKEDA-2018TUS022081

PATIENT
  Age: 25 Year
  Sex: Male
  Weight: 74 kg

DRUGS (4)
  1. MEZAVANT [Concomitant]
     Active Substance: MESALAMINE
     Indication: CROHN^S DISEASE
     Dosage: 3600 MG, UNK
     Dates: start: 20180306
  2. VEDOLIZUMAB [Suspect]
     Active Substance: VEDOLIZUMAB
     Indication: INFLAMMATORY BOWEL DISEASE
     Dosage: 300 MG, UNK
     Route: 042
  3. URSOFALK [Concomitant]
     Active Substance: URSODIOL
     Indication: CHOLANGITIS SCLEROSING
     Dosage: 500 MG, UNK
  4. PREDNISOLONE. [Concomitant]
     Active Substance: PREDNISOLONE
     Dosage: 10 MG, QD

REACTIONS (4)
  - Jaundice [Recovered/Resolved]
  - Drug-induced liver injury [Unknown]
  - Hepatitis [Recovered/Resolved]
  - Cholangitis sclerosing [Unknown]

NARRATIVE: CASE EVENT DATE: 20180705
